FAERS Safety Report 8305652 (Version 3)
Quarter: 2012Q4

REPORT INFORMATION
  Report Type: Spontaneous
  Country: GB (occurrence: None)
  Receive Date: 20111213
  Receipt Date: 20121023
  Transmission Date: 20130627
  Serious: Yes (Other)
  Sender: FDA-Public Use
  Company Number: 2011MPI00332

PATIENT
  Age: 38 Year
  Sex: Male

DRUGS (1)
  1. BRENTUXIMAB VEDOTIN [Suspect]
     Indication: HODGKIN^S LYMPHOMA
     Dosage: 160 MG, INTRAVENOUS
     Route: 042
     Dates: start: 20110304, end: 20110304

REACTIONS (1)
  - Deafness transitory [None]
